FAERS Safety Report 9363072 (Version 1)
Quarter: 2013Q2

REPORT INFORMATION
  Report Type: Spontaneous
  Country: US (occurrence: US)
  Receive Date: 20130624
  Receipt Date: 20130624
  Transmission Date: 20140414
  Serious: No
  Sender: FDA-Public Use
  Company Number: US-PFIZER INC-2013187570

PATIENT
  Sex: Female

DRUGS (1)
  1. CHANTIX [Suspect]
     Dosage: UNK
     Dates: start: 201306

REACTIONS (5)
  - Tobacco user [Unknown]
  - Feeling abnormal [Unknown]
  - Dizziness [Unknown]
  - Speech disorder [Unknown]
  - Dysarthria [Unknown]
